FAERS Safety Report 20940374 (Version 1)
Quarter: 2022Q2

REPORT INFORMATION
  Report Type: Spontaneous
  Country: US (occurrence: US)
  Receive Date: 20220609
  Receipt Date: 20220609
  Transmission Date: 20220721
  Serious: Yes (Other)
  Sender: FDA-Public Use
  Company Number: US-NOVARTISPH-NVSC2022US128121

PATIENT
  Age: 85 Year
  Sex: Male

DRUGS (6)
  1. DECITABINE [Suspect]
     Active Substance: DECITABINE
     Indication: Acute bilineal leukaemia
     Dosage: 20 MG/M2, CYCLIC (DAY 1-5) (C1-3)
     Route: 065
  2. DECITABINE [Suspect]
     Active Substance: DECITABINE
     Dosage: 20 MG/M2, CYCLIC (DAY 1-5) (C4)
     Route: 065
  3. DECITABINE [Suspect]
     Active Substance: DECITABINE
     Dosage: 20 MG/M2, CYCLIC (DAY 1-5) (C5)
     Route: 065
  4. VENETOCLAX [Suspect]
     Active Substance: VENETOCLAX
     Indication: Acute bilineal leukaemia
     Dosage: 100 MG, QD (1-21) (C1-3)
     Route: 065
  5. VENETOCLAX [Suspect]
     Active Substance: VENETOCLAX
     Dosage: 100 MG, QD (C5)
     Route: 065
  6. POSACONAZOLE [Concomitant]
     Active Substance: POSACONAZOLE
     Indication: Antifungal prophylaxis
     Dosage: UNK
     Route: 065

REACTIONS (12)
  - Neutropenia [Unknown]
  - Bacteraemia [Recovering/Resolving]
  - Gastrointestinal haemorrhage [Unknown]
  - Thrombocytopenia [Unknown]
  - Tumour lysis syndrome [Unknown]
  - Acute bilineal leukaemia [Unknown]
  - Malignant neoplasm progression [Unknown]
  - Leukocytosis [Recovering/Resolving]
  - Fatigue [Unknown]
  - Anaemia [Unknown]
  - Therapy partial responder [Unknown]
  - Product use in unapproved indication [Unknown]
